FAERS Safety Report 5732934-X (Version None)
Quarter: 2008Q2

REPORT INFORMATION
  Report Type: 
  Country: None (occurrence: None)
  Receive Date: 20080509
  Receipt Date: 20080414
  Transmission Date: 20081010
  Serious: No
  Sender: FDA-Public Use
  Company Number: A0722583A

PATIENT
  Age: 78 Year
  Sex: Male

DRUGS (4)
  1. COREG CR [Suspect]
     Indication: HYPERTENSION
     Dosage: 20MG PER DAY
     Route: 048
     Dates: start: 20080307
  2. VITAMINS [Concomitant]
  3. FISH OIL [Concomitant]
  4. TYLENOL [Concomitant]

REACTIONS (12)
  - BLOOD PRESSURE FLUCTUATION [None]
  - BLOOD PRESSURE INCREASED [None]
  - COORDINATION ABNORMAL [None]
  - DIZZINESS [None]
  - FEELING HOT [None]
  - FLUSHING [None]
  - HEADACHE [None]
  - INSOMNIA [None]
  - NAUSEA [None]
  - NERVOUSNESS [None]
  - OVERDOSE [None]
  - TINNITUS [None]
